FAERS Safety Report 6720349-7 (Version None)
Quarter: 2010Q2

REPORT INFORMATION
  Report Type: 
  Country: None (occurrence: None)
  Receive Date: 20100511
  Receipt Date: 20100503
  Transmission Date: 20101027
  Serious: Yes (Other)
  Sender: FDA-Public Use
  Company Number: US-PFIZER INC-2010056262

PATIENT
  Sex: Male
  Weight: 78 kg

DRUGS (2)
  1. LIPITOR [Suspect]
     Indication: BLOOD CHOLESTEROL INCREASED
     Dosage: 10 MG, DAILY
     Route: 048
  2. ATENOLOL [Concomitant]
     Indication: CARDIAC DISORDER

REACTIONS (4)
  - FEELING ABNORMAL [None]
  - LIMB DISCOMFORT [None]
  - MUSCLE RUPTURE [None]
  - ROTATOR CUFF SYNDROME [None]
